FAERS Safety Report 13155905 (Version 1)
Quarter: 2017Q1

REPORT INFORMATION
  Report Type: Spontaneous
  Country: US (occurrence: US)
  Receive Date: 20170126
  Receipt Date: 20170126
  Transmission Date: 20170428
  Serious: No
  Sender: FDA-Public Use
  Company Number: US-ROCHE-1272678

PATIENT
  Sex: Female

DRUGS (1)
  1. CATHFLO ACTIVASE [Suspect]
     Active Substance: ALTEPLASE
     Indication: DEVICE OCCLUSION
     Route: 065

REACTIONS (1)
  - Injection site extravasation [Unknown]
